FAERS Safety Report 7500517-7 (Version None)
Quarter: 2011Q2

REPORT INFORMATION
  Report Type: 
  Country: None (occurrence: None)
  Receive Date: 20110524
  Receipt Date: 20110519
  Transmission Date: 20111010
  Serious: No
  Sender: FDA-Public Use
  Company Number: US-PFIZER INC-2011077482

PATIENT
  Sex: Female
  Weight: 107 kg

DRUGS (3)
  1. ALPRAZOLAM [Suspect]
     Indication: ANXIETY
     Dosage: UNK
     Route: 048
     Dates: start: 20101101
  2. OMEPRAZOLE [Interacting]
     Indication: DYSPEPSIA
     Dosage: 20 MG, 2X/DAY
     Route: 048
     Dates: start: 20040101
  3. SELEGILINE [Interacting]
     Indication: DEPRESSION
     Dosage: 12 MG, UNK
     Route: 062

REACTIONS (10)
  - IRRITABILITY [None]
  - ANXIETY [None]
  - DEPRESSED MOOD [None]
  - SOMNOLENCE [None]
  - DRUG INEFFECTIVE [None]
  - FEELING ABNORMAL [None]
  - CRYING [None]
  - WEIGHT INCREASED [None]
  - FATIGUE [None]
  - DRUG INTERACTION [None]
